FAERS Safety Report 25739883 (Version 1)
Quarter: 2025Q3

REPORT INFORMATION
  Report Type: Spontaneous
  Country: US (occurrence: US)
  Receive Date: 20250829
  Receipt Date: 20250829
  Transmission Date: 20251020
  Serious: Yes (Hospitalization)
  Sender: MYLAN
  Company Number: US-MYLANLABS-2025M1072787

PATIENT
  Age: 61 Year
  Sex: Female

DRUGS (52)
  1. DEXAMETHASONE [Suspect]
     Active Substance: DEXAMETHASONE
     Indication: Diffuse large B-cell lymphoma
  2. DEXAMETHASONE [Suspect]
     Active Substance: DEXAMETHASONE
  3. DEXAMETHASONE [Suspect]
     Active Substance: DEXAMETHASONE
     Route: 065
  4. DEXAMETHASONE [Suspect]
     Active Substance: DEXAMETHASONE
     Route: 065
  5. DEXAMETHASONE [Suspect]
     Active Substance: DEXAMETHASONE
  6. DEXAMETHASONE [Suspect]
     Active Substance: DEXAMETHASONE
  7. DEXAMETHASONE [Suspect]
     Active Substance: DEXAMETHASONE
     Route: 065
  8. DEXAMETHASONE [Suspect]
     Active Substance: DEXAMETHASONE
     Route: 065
  9. THIAMINE HYDROCHLORIDE [Suspect]
     Active Substance: THIAMINE HYDROCHLORIDE
     Indication: Encephalopathy
  10. THIAMINE HYDROCHLORIDE [Suspect]
     Active Substance: THIAMINE HYDROCHLORIDE
     Route: 042
  11. THIAMINE HYDROCHLORIDE [Suspect]
     Active Substance: THIAMINE HYDROCHLORIDE
     Route: 042
  12. THIAMINE HYDROCHLORIDE [Suspect]
     Active Substance: THIAMINE HYDROCHLORIDE
  13. RITUXIMAB [Suspect]
     Active Substance: RITUXIMAB
     Indication: Diffuse large B-cell lymphoma
  14. RITUXIMAB [Suspect]
     Active Substance: RITUXIMAB
  15. RITUXIMAB [Suspect]
     Active Substance: RITUXIMAB
     Route: 065
  16. RITUXIMAB [Suspect]
     Active Substance: RITUXIMAB
     Route: 065
  17. RITUXIMAB [Suspect]
     Active Substance: RITUXIMAB
  18. RITUXIMAB [Suspect]
     Active Substance: RITUXIMAB
  19. RITUXIMAB [Suspect]
     Active Substance: RITUXIMAB
     Route: 065
  20. RITUXIMAB [Suspect]
     Active Substance: RITUXIMAB
     Route: 065
  21. CYTARABINE [Suspect]
     Active Substance: CYTARABINE
     Indication: Diffuse large B-cell lymphoma
  22. CYTARABINE [Suspect]
     Active Substance: CYTARABINE
     Route: 065
  23. CYTARABINE [Suspect]
     Active Substance: CYTARABINE
     Route: 065
  24. CYTARABINE [Suspect]
     Active Substance: CYTARABINE
  25. CISPLATIN [Suspect]
     Active Substance: CISPLATIN
     Indication: Diffuse large B-cell lymphoma
  26. CISPLATIN [Suspect]
     Active Substance: CISPLATIN
     Route: 065
  27. CISPLATIN [Suspect]
     Active Substance: CISPLATIN
     Route: 065
  28. CISPLATIN [Suspect]
     Active Substance: CISPLATIN
  29. IFOSFAMIDE [Concomitant]
     Active Substance: IFOSFAMIDE
     Indication: Diffuse large B-cell lymphoma
  30. IFOSFAMIDE [Concomitant]
     Active Substance: IFOSFAMIDE
     Route: 065
  31. IFOSFAMIDE [Concomitant]
     Active Substance: IFOSFAMIDE
     Route: 065
  32. IFOSFAMIDE [Concomitant]
     Active Substance: IFOSFAMIDE
  33. METHYLENE BLUE [Concomitant]
     Active Substance: METHYLENE BLUE
     Indication: Encephalopathy
  34. METHYLENE BLUE [Concomitant]
     Active Substance: METHYLENE BLUE
     Route: 065
  35. METHYLENE BLUE [Concomitant]
     Active Substance: METHYLENE BLUE
     Route: 065
  36. METHYLENE BLUE [Concomitant]
     Active Substance: METHYLENE BLUE
  37. MESNA [Concomitant]
     Active Substance: MESNA
     Indication: Product used for unknown indication
  38. MESNA [Concomitant]
     Active Substance: MESNA
  39. MESNA [Concomitant]
     Active Substance: MESNA
     Route: 065
  40. MESNA [Concomitant]
     Active Substance: MESNA
     Route: 065
  41. MESNA [Concomitant]
     Active Substance: MESNA
  42. MESNA [Concomitant]
     Active Substance: MESNA
  43. MESNA [Concomitant]
     Active Substance: MESNA
     Route: 065
  44. MESNA [Concomitant]
     Active Substance: MESNA
     Route: 065
  45. CARBOPLATIN [Concomitant]
     Active Substance: CARBOPLATIN
     Indication: Diffuse large B-cell lymphoma
  46. CARBOPLATIN [Concomitant]
     Active Substance: CARBOPLATIN
     Route: 065
  47. CARBOPLATIN [Concomitant]
     Active Substance: CARBOPLATIN
     Route: 065
  48. CARBOPLATIN [Concomitant]
     Active Substance: CARBOPLATIN
  49. ETOPOSIDE [Concomitant]
     Active Substance: ETOPOSIDE
     Indication: Diffuse large B-cell lymphoma
  50. ETOPOSIDE [Concomitant]
     Active Substance: ETOPOSIDE
     Route: 065
  51. ETOPOSIDE [Concomitant]
     Active Substance: ETOPOSIDE
     Route: 065
  52. ETOPOSIDE [Concomitant]
     Active Substance: ETOPOSIDE

REACTIONS (2)
  - Disease progression [Unknown]
  - Drug ineffective [Unknown]
